FAERS Safety Report 7116160-8 (Version None)
Quarter: 2010Q4

REPORT INFORMATION
  Report Type: 
  Country: None (occurrence: None)
  Receive Date: 20101122
  Receipt Date: 20101110
  Transmission Date: 20110411
  Serious: Yes (Hospitalization, Other)
  Sender: FDA-Public Use
  Company Number: PHHY2010JP73251

PATIENT
  Age: 81 Year
  Sex: Female

DRUGS (14)
  1. HYDERGINE [Suspect]
     Dosage: 4 MG DAILY
     Route: 060
     Dates: end: 20101027
  2. ARICEPT [Concomitant]
     Dosage: 5 MG
     Route: 048
  3. ZOLOFT [Concomitant]
     Dosage: 25 MG
     Route: 048
  4. BLADDERON [Concomitant]
     Dosage: 600 MG
     Route: 048
  5. EPENARD [Concomitant]
     Dosage: 150 MG
     Route: 048
  6. MAGMITT KENEI [Concomitant]
     Dosage: 750 MG
     Route: 048
  7. TEPRENONE [Concomitant]
     Dosage: 150N MG
     Route: 048
  8. SODIUM BICARBONATE [Concomitant]
     Dosage: 3 G
     Route: 048
  9. SENNOSIDE [Concomitant]
     Dosage: 24 MG
     Route: 048
  10. LENDORMIN [Concomitant]
     Dosage: 0.25 MG
     Route: 048
  11. TAKEPRON [Concomitant]
     Dosage: 30 MG
     Route: 048
  12. AMLODIPINE BESYLATE [Concomitant]
     Dosage: 2.5 MG
     Route: 048
  13. ETIZOLAM [Concomitant]
     Dosage: 1MG
     Route: 048
  14. TPN [Concomitant]
     Dosage: 200 ML
     Route: 048

REACTIONS (6)
  - BLOOD POTASSIUM DECREASED [None]
  - BLOOD PRESSURE DECREASED [None]
  - BLOOD SODIUM DECREASED [None]
  - FATIGUE [None]
  - HEART RATE DECREASED [None]
  - MIOSIS [None]
